FAERS Safety Report 5744600-5 (Version None)
Quarter: 2008Q2

REPORT INFORMATION
  Report Type: 
  Country: None (occurrence: None)
  Receive Date: 20080520
  Receipt Date: 20071115
  Transmission Date: 20081010
  Serious: No
  Sender: FDA-Public Use
  Company Number: US-ABBOTT-07P-163-0424029-00

PATIENT
  Sex: Female
  Weight: 63.106 kg

DRUGS (2)
  1. AZMACORT [Suspect]
     Indication: ASTHMA
     Route: 055
  2. FLOURADIL [Concomitant]
     Indication: DRUG USE FOR UNKNOWN INDICATION

REACTIONS (5)
  - AGITATION [None]
  - ANXIETY [None]
  - PRURITUS [None]
  - RESPIRATION ABNORMAL [None]
  - UNDERDOSE [None]
